FAERS Safety Report 19476152 (Version 1)
Quarter: 2021Q2

REPORT INFORMATION
  Report Type: Spontaneous
  Country: IT (occurrence: IT)
  Receive Date: 20210630
  Receipt Date: 20210630
  Transmission Date: 20210717
  Serious: Yes (Hospitalization, Other)
  Sender: FDA-Public Use
  Company Number: IT-LUPIN PHARMACEUTICALS INC.-2021-10553

PATIENT
  Age: 70 Year
  Sex: Female

DRUGS (1)
  1. HYDROXYCHLOROQUINE [Suspect]
     Active Substance: HYDROXYCHLOROQUINE
     Indication: MIXED CONNECTIVE TISSUE DISEASE
     Dosage: 200 MILLIGRAM, QD
     Route: 065
     Dates: start: 2015

REACTIONS (12)
  - Mitral valve incompetence [Recovered/Resolved]
  - Tricuspid valve incompetence [Recovered/Resolved]
  - Left ventricular hypertrophy [Recovered/Resolved]
  - Pleural effusion [Recovered/Resolved]
  - Left ventricular end-diastolic pressure increased [Recovered/Resolved]
  - Right ventricular dilatation [Recovered/Resolved]
  - Cardiac failure chronic [Recovered/Resolved]
  - Dilatation atrial [Recovered/Resolved]
  - Cardiac index decreased [Recovered/Resolved]
  - Pulmonary hypertension [Recovered/Resolved]
  - Toxicity to various agents [Recovered/Resolved]
  - Systolic dysfunction [Recovered/Resolved]
